FAERS Safety Report 25798679 (Version 2)
Quarter: 2025Q4

REPORT INFORMATION
  Report Type: Spontaneous
  Country: CA (occurrence: CA)
  Receive Date: 20250913
  Receipt Date: 20251031
  Transmission Date: 20260117
  Serious: Yes (Hospitalization, Other)
  Sender: AUROBINDO
  Company Number: CA-AUROBINDO-AUR-APL-2025-045539

PATIENT
  Age: 53 Year
  Sex: Female

DRUGS (16)
  1. OLANZAPINE [Suspect]
     Active Substance: OLANZAPINE
     Indication: Schizoaffective disorder
     Dosage: 20 MILLIGRAM, ONCE A DAY
     Route: 065
  2. OLANZAPINE [Suspect]
     Active Substance: OLANZAPINE
     Indication: Major depression
  3. OLANZAPINE [Suspect]
     Active Substance: OLANZAPINE
     Indication: Generalised anxiety disorder
  4. SERTRALINE [Suspect]
     Active Substance: SERTRALINE HYDROCHLORIDE
     Indication: Williams syndrome
     Dosage: 175 MILLIGRAM, ONCE A DAY
     Route: 065
  5. SERTRALINE [Suspect]
     Active Substance: SERTRALINE HYDROCHLORIDE
     Dosage: 200 MILLIGRAM, ONCE A DAY
     Route: 065
  6. QUETIAPINE [Suspect]
     Active Substance: QUETIAPINE
     Indication: Williams syndrome
     Dosage: UNK
     Route: 065
  7. CLOZAPINE [Suspect]
     Active Substance: CLOZAPINE
     Indication: Williams syndrome
     Dosage: UNK
     Route: 065
  8. PERPHENAZINE [Suspect]
     Active Substance: PERPHENAZINE
     Indication: Williams syndrome
     Dosage: UNK
     Route: 065
  9. LORAZEPAM [Suspect]
     Active Substance: LORAZEPAM
     Indication: Williams syndrome
     Dosage: 1 MILLIGRAM, TWO TIMES A DAY
     Route: 065
  10. CHLORPROMAZINE [Suspect]
     Active Substance: CHLORPROMAZINE
     Indication: Product used for unknown indication
     Dosage: UNK
     Route: 065
  11. HALOPERIDOL [Suspect]
     Active Substance: HALOPERIDOL
     Indication: Product used for unknown indication
     Dosage: UNK
     Route: 065
  12. PALIPERIDONE [Suspect]
     Active Substance: PALIPERIDONE
     Indication: Product used for unknown indication
     Dosage: UNK
     Route: 065
  13. SEROQUEL [Suspect]
     Active Substance: QUETIAPINE FUMARATE
     Indication: Schizoaffective disorder
     Dosage: 400 MILLIGRAM, ONCE A DAY
     Route: 065
  14. SEROQUEL [Suspect]
     Active Substance: QUETIAPINE FUMARATE
     Indication: Major depression
  15. SEROQUEL [Suspect]
     Active Substance: QUETIAPINE FUMARATE
     Indication: Generalised anxiety disorder
  16. THIORIDAZINE [Suspect]
     Active Substance: THIORIDAZINE
     Indication: Product used for unknown indication
     Dosage: UNK
     Route: 065

REACTIONS (13)
  - Movement disorder [Recovered/Resolved]
  - Tremor [Unknown]
  - Apraxia [Unknown]
  - Dyskinesia [Unknown]
  - Dystonia [Unknown]
  - Head titubation [Unknown]
  - Hyponatraemia [Unknown]
  - Myoclonus [Unknown]
  - Parkinsonism [Unknown]
  - Petit mal epilepsy [Unknown]
  - Polydipsia [Unknown]
  - Tardive dyskinesia [Unknown]
  - Drug ineffective [Unknown]
